FAERS Safety Report 9740096 (Version 3)
Quarter: 2015Q4

REPORT INFORMATION
  Report Type: Spontaneous
  Country: HU (occurrence: HU)
  Receive Date: 20131209
  Receipt Date: 20151202
  Transmission Date: 20160305
  Serious: Yes (Hospitalization, Other)
  Sender: FDA-Public Use
  Company Number: HU-GLAXOSMITHKLINE-B0951263A

PATIENT
  Age: 69 Year
  Sex: Female

DRUGS (4)
  1. SERETIDE [Suspect]
     Active Substance: FLUTICASONE FUROATE\SALMETEROL XINAFOATE
     Indication: CHRONIC OBSTRUCTIVE PULMONARY DISEASE
     Route: 065
  2. ANTIBIOTICS [Concomitant]
     Active Substance: UNSPECIFIED INGREDIENT
     Indication: CONDITION AGGRAVATED
     Route: 065
  3. TIOTROPIUM [Concomitant]
     Active Substance: TIOTROPIUM
     Indication: CHRONIC OBSTRUCTIVE PULMONARY DISEASE
  4. STEROIDS [Concomitant]
     Active Substance: UNSPECIFIED INGREDIENT
     Indication: CONDITION AGGRAVATED
     Route: 048

REACTIONS (11)
  - Dyspnoea [Unknown]
  - White blood cell count increased [Unknown]
  - Sputum purulent [Unknown]
  - Atelectasis [Unknown]
  - Night sweats [Unknown]
  - Decreased appetite [Unknown]
  - Bronchial wall thickening [Unknown]
  - Nocardiosis [Recovered/Resolved]
  - Productive cough [Unknown]
  - Pyrexia [Unknown]
  - Anaemia [Unknown]

NARRATIVE: CASE EVENT DATE: 2013
